FAERS Safety Report 12639242 (Version 1)
Quarter: 2016Q3

REPORT INFORMATION
  Report Type: Spontaneous
  Country: US (occurrence: US)
  Receive Date: 20160810
  Receipt Date: 20160810
  Transmission Date: 20161109
  Serious: Yes (Other)
  Sender: FDA-Public Use
  Company Number: US-ZYDUS-011853

PATIENT
  Age: 51 Year
  Sex: Female

DRUGS (1)
  1. OMEPRAZOLE. [Suspect]
     Active Substance: OMEPRAZOLE
     Indication: GASTROOESOPHAGEAL REFLUX DISEASE
     Route: 065

REACTIONS (9)
  - Electrocardiogram QT prolonged [Unknown]
  - Tetany [Recovered/Resolved]
  - Urinary incontinence [Unknown]
  - Hypomagnesaemia [Recovered/Resolved]
  - Hypocalcaemia [Recovered/Resolved]
  - Trousseau^s sign [Recovered/Resolved]
  - Musculoskeletal stiffness [Unknown]
  - Seizure [Unknown]
  - Tongue biting [Unknown]
